FAERS Safety Report 15792828 (Version 3)
Quarter: 2019Q1

REPORT INFORMATION
  Report Type: Report from Study
  Country: IT (occurrence: IT)
  Receive Date: 20190107
  Receipt Date: 20190124
  Transmission Date: 20190417
  Serious: Yes (Death, Other)
  Sender: FDA-Public Use
  Company Number: IT-EMD SERONO-9062698

PATIENT
  Age: 62 Year
  Sex: Male

DRUGS (2)
  1. CARDIOASPIRIN [Concomitant]
     Active Substance: ASPIRIN
     Indication: HYPERTENSION
  2. REBIF [Suspect]
     Active Substance: INTERFERON BETA-1A
     Indication: MULTIPLE SCLEROSIS
     Dates: start: 20111220

REACTIONS (5)
  - Myocardial infarction [Fatal]
  - Colon cancer [Unknown]
  - Lung neoplasm malignant [Unknown]
  - Post procedural complication [Unknown]
  - Abdominal hernia [Unknown]

NARRATIVE: CASE EVENT DATE: 2014
